FAERS Safety Report 19710255 (Version 1)
Quarter: 2021Q3

REPORT INFORMATION
  Report Type: Report from Study
  Country: MX (occurrence: MX)
  Receive Date: 20210817
  Receipt Date: 20210817
  Transmission Date: 20211014
  Serious: Yes (Other)
  Sender: FDA-Public Use
  Company Number: NVSC2020MX283000

PATIENT
  Age: 63 Year
  Sex: Female

DRUGS (1)
  1. TASIGNA [Suspect]
     Active Substance: NILOTINIB
     Indication: CHRONIC MYELOID LEUKAEMIA
     Dosage: 1 DF (400 MG,), Q12H
     Route: 048
     Dates: start: 202005

REACTIONS (7)
  - Colitis [Not Recovered/Not Resolved]
  - Alopecia [Not Recovered/Not Resolved]
  - Headache [Not Recovered/Not Resolved]
  - Gastritis [Not Recovered/Not Resolved]
  - Vision blurred [Not Recovered/Not Resolved]
  - Hepatic pain [Not Recovered/Not Resolved]
  - Cholelithiasis [Not Recovered/Not Resolved]

NARRATIVE: CASE EVENT DATE: 202005
